FAERS Safety Report 19115254 (Version 1)
Quarter: 2021Q2

REPORT INFORMATION
  Report Type: Spontaneous
  Country: IN (occurrence: IN)
  Receive Date: 20210409
  Receipt Date: 20210409
  Transmission Date: 20210717
  Serious: Yes (Hospitalization, Other)
  Sender: FDA-Public Use
  Company Number: IN-ACCORD-222360

PATIENT
  Age: 13 Month
  Sex: Male

DRUGS (2)
  1. TACROLIMUS. [Suspect]
     Active Substance: TACROLIMUS
     Indication: IMMUNOSUPPRESSION
  2. PREDNISOLONE. [Suspect]
     Active Substance: PREDNISOLONE
     Indication: IMMUNOSUPPRESSION
     Dosage: INCREASED TO 5 MG/DAY

REACTIONS (9)
  - Tumour necrosis [Recovered/Resolved]
  - Post transplant lymphoproliferative disorder [Recovered/Resolved]
  - Small intestinal perforation [Recovered/Resolved]
  - Klebsiella infection [Unknown]
  - Drug level increased [Unknown]
  - Pseudomonas infection [Unknown]
  - Acute kidney injury [Unknown]
  - Candida infection [Unknown]
  - Bacteraemia [Unknown]
